FAERS Safety Report 9719844 (Version 1)
Quarter: 2013Q4

REPORT INFORMATION
  Report Type: Spontaneous
  Country: US (occurrence: US)
  Receive Date: 20131128
  Receipt Date: 20131128
  Transmission Date: 20140711
  Serious: No
  Sender: FDA-Public Use
  Company Number: US-009507513-1311USA009325

PATIENT
  Age: 53 Year
  Sex: Female

DRUGS (7)
  1. SAPHRIS [Suspect]
     Indication: BIPOLAR DISORDER
     Dosage: 2 DF, HS (10MG, 2 TABLETS AT NIGTH)
     Route: 060
     Dates: end: 201310
  2. HUMULIN [Concomitant]
     Dosage: UNK
  3. AMLODIPINE [Concomitant]
     Dosage: UNK
  4. METOPROLOL TARTRATE [Concomitant]
     Dosage: UNK
  5. LEVOTHYROXINE SODIUM [Concomitant]
     Dosage: UNK
  6. MORPHINE [Concomitant]
     Dosage: 15 MG, BID
  7. OXYCODONE [Concomitant]
     Dosage: 10 MG, TID

REACTIONS (6)
  - Galactorrhoea [Not Recovered/Not Resolved]
  - Local swelling [Not Recovered/Not Resolved]
  - Local swelling [Not Recovered/Not Resolved]
  - Breast enlargement [Not Recovered/Not Resolved]
  - Blood prolactin abnormal [Not Recovered/Not Resolved]
  - Weight increased [Not Recovered/Not Resolved]
